FAERS Safety Report 6573887-4 (Version None)
Quarter: 2010Q1

REPORT INFORMATION
  Report Type: 
  Country: None (occurrence: None)
  Receive Date: 20100208
  Receipt Date: 20100125
  Transmission Date: 20100710
  Serious: Yes (Other)
  Sender: FDA-Public Use
  Company Number: DE-MYLANLABS-2010S1001489

PATIENT
  Age: 66 Year
  Sex: Male
  Weight: 55 kg

DRUGS (6)
  1. OMEPRAZOLE [Suspect]
     Indication: PROPHYLAXIS
     Dosage: DAILY DOSE: 1 DF DOSAGE FORM EVERY DAYS
  2. FUROSEMID [Concomitant]
     Indication: DRUG USE FOR UNKNOWN INDICATION
     Dosage: DAILY DOSE: 1 DF DOSAGE FORM EVERY DAYS
  3. DIGIMED [Concomitant]
     Indication: DRUG USE FOR UNKNOWN INDICATION
     Dosage: DAILY DOSE: 1 DF DOSAGE FORM EVERY DAYS
  4. SPIRIVA [Concomitant]
     Indication: DRUG USE FOR UNKNOWN INDICATION
     Dosage: DAILY DOSE: 1 DF DOSAGE FORM EVERY DAYS
  5. PREDNISOLON [Concomitant]
     Indication: DRUG USE FOR UNKNOWN INDICATION
     Dosage: DAILY DOSE: 1 DF DOSAGE FORM EVERY DAYS
  6. FORADIL [Concomitant]
     Indication: DRUG USE FOR UNKNOWN INDICATION
     Dosage: DAILY DOSE: 4 DF DOSAGE FORM EVERY DAYS

REACTIONS (2)
  - VISUAL ACUITY REDUCED [None]
  - VISUAL IMPAIRMENT [None]
